FAERS Safety Report 13619570 (Version 2)
Quarter: 2017Q2

REPORT INFORMATION
  Report Type: Spontaneous
  Country: JP (occurrence: JP)
  Receive Date: 20170606
  Receipt Date: 20170613
  Transmission Date: 20170830
  Serious: Yes (Other)
  Sender: FDA-Public Use
  Company Number: JP-BAYER-2017-106105

PATIENT
  Age: 22 Year
  Sex: Male

DRUGS (1)
  1. ANTIHEMOPHILIC FACTOR (RECOMBINANT), SUCROSE FORMULATED FS [Suspect]
     Active Substance: ANTIHEMOPHILIC FACTOR, HUMAN RECOMBINANT
     Indication: FACTOR VIII DEFICIENCY

REACTIONS (9)
  - Bone contusion [None]
  - Traumatic haematoma [None]
  - Muscle contusion [None]
  - Injury [None]
  - Laceration [None]
  - Staphylococcal infection [Recovering/Resolving]
  - Abscess limb [Recovering/Resolving]
  - Bone marrow oedema [None]
  - Limb injury [None]
